FAERS Safety Report 5012911-7 (Version None)
Quarter: 2006Q2

REPORT INFORMATION
  Report Type: 
  Country: None (occurrence: None)
  Receive Date: 20060525
  Receipt Date: 20060525
  Transmission Date: 20061013
  Serious: Yes (Life-Threatening)
  Sender: FDA-Public Use
  Company Number: None

PATIENT
  Sex: Female
  Weight: 56.246 kg

DRUGS (1)
  1. ATAZANAVIR 200MG [Suspect]
     Indication: ACQUIRED IMMUNODEFICIENCY SYNDROME
     Dosage: 400MG QD PO
     Route: 048
     Dates: start: 20051202, end: 20060115

REACTIONS (3)
  - BRADYCARDIA [None]
  - SYNCOPE [None]
  - TORSADE DE POINTES [None]
